FAERS Safety Report 20852551 (Version 3)
Quarter: 2022Q3

REPORT INFORMATION
  Report Type: Spontaneous
  Country: LT (occurrence: LT)
  Receive Date: 20220520
  Receipt Date: 20220718
  Transmission Date: 20221026
  Serious: Yes (Hospitalization)
  Sender: FDA-Public Use
  Company Number: None

PATIENT
  Age: 50 Year
  Sex: Female
  Weight: 50 kg

DRUGS (9)
  1. METOPROLOL [Interacting]
     Active Substance: METOPROLOL
     Indication: Product used for unknown indication
     Dosage: 380 MG (4 UNITS)
     Route: 065
     Dates: start: 20220422, end: 20220422
  2. PREGABALIN [Interacting]
     Active Substance: PREGABALIN
     Indication: Product used for unknown indication
     Dosage: 675 MG, (9 UNITS)
     Route: 065
     Dates: start: 20220422, end: 20220422
  3. ALCOHOL [Interacting]
     Active Substance: ALCOHOL
     Indication: Product used for unknown indication
     Dosage: UNK (UNKNOWN AMOUNT)
     Route: 048
     Dates: start: 20220422, end: 20220422
  4. BISACODYL [Interacting]
     Active Substance: BISACODYL
     Indication: Product used for unknown indication
     Dosage: 75 MG (15 UNITS)
     Route: 065
     Dates: start: 20220422, end: 20220422
  5. CLONAZEPAM [Interacting]
     Active Substance: CLONAZEPAM
     Indication: Product used for unknown indication
     Dosage: 20 MG, (10 UNITS)
     Route: 065
     Dates: start: 20220422, end: 20220422
  6. DIAZEPAM [Interacting]
     Active Substance: DIAZEPAM
     Indication: Insomnia
     Dosage: 135 MG, 1 TOTAL , (27 TABLETS)
     Route: 048
     Dates: start: 20220422, end: 20220422
  7. DIAZEPAM [Interacting]
     Active Substance: DIAZEPAM
     Indication: Anxiety
  8. QUETIAPINE [Interacting]
     Active Substance: QUETIAPINE
     Indication: Product used for unknown indication
     Dosage: 1400 MG, (7 UNITS)
     Route: 065
     Dates: start: 20220422, end: 20220422
  9. ITOPRIDE HYDROCHLORIDE [Interacting]
     Active Substance: ITOPRIDE HYDROCHLORIDE
     Indication: Product used for unknown indication
     Dosage: 150 MG, (3 UNITS)
     Route: 065
     Dates: start: 20220422, end: 20220422

REACTIONS (8)
  - Suicide attempt [Recovered/Resolved]
  - Drug interaction [Recovered/Resolved]
  - Sluggishness [Recovered/Resolved]
  - Alcohol interaction [Recovered/Resolved]
  - Blood pressure decreased [Recovered/Resolved]
  - Medication error [Recovered/Resolved]
  - Off label use [Recovered/Resolved]
  - Intentional overdose [Recovered/Resolved]

NARRATIVE: CASE EVENT DATE: 20220422
